FAERS Safety Report 4316186-3 (Version None)
Quarter: 2004Q1

REPORT INFORMATION
  Report Type: 
  Country: None (occurrence: None)
  Receive Date: 20040312
  Receipt Date: 20030320
  Transmission Date: 20041129
  Serious: Yes (Other)
  Sender: FDA-Public Use
  Company Number: US-GLAXOSMITHKLINE-A0401545A

PATIENT
  Age: 45 Year
  Sex: Female
  Weight: 68.2 kg

DRUGS (7)
  1. LOTRONEX [Suspect]
     Indication: IRRITABLE BOWEL SYNDROME
     Dosage: 1TAB PER DAY
     Route: 048
     Dates: start: 20000801
  2. VIOXX [Concomitant]
     Dosage: 25MG PER DAY
  3. PROZAC [Concomitant]
  4. PREVACID [Concomitant]
  5. ESTRADIOL [Concomitant]
     Dates: start: 19920311
  6. VALIUM [Concomitant]
  7. SOMA [Concomitant]

REACTIONS (17)
  - ABDOMINAL PAIN [None]
  - ABDOMINAL PAIN UPPER [None]
  - ADHESION [None]
  - ANXIETY [None]
  - APPENDICITIS PERFORATED [None]
  - CONSTIPATION [None]
  - DIARRHOEA [None]
  - GASTRITIS [None]
  - GASTROINTESTINAL DISORDER [None]
  - HAEMORRHOIDS [None]
  - HERNIA [None]
  - MUSCLE STRAIN [None]
  - PAIN [None]
  - RECTAL HAEMORRHAGE [None]
  - SMALL INTESTINAL OBSTRUCTION [None]
  - VOLVULUS OF BOWEL [None]
  - VOMITING [None]
